FAERS Safety Report 7593893-0 (Version None)
Quarter: 2011Q3

REPORT INFORMATION
  Report Type: 
  Country: None (occurrence: None)
  Receive Date: 20110706
  Receipt Date: 20110628
  Transmission Date: 20111222
  Serious: Yes (Other)
  Sender: FDA-Public Use
  Company Number: PHHY2011BR58454

PATIENT
  Age: 64 Year
  Sex: Female
  Weight: 50 kg

DRUGS (1)
  1. FEMARA [Suspect]
     Dosage: UNK
     Route: 048

REACTIONS (2)
  - RHEUMATOID ARTHRITIS [None]
  - PAIN [None]
